FAERS Safety Report 19273898 (Version 1)
Quarter: 2021Q2

REPORT INFORMATION
  Report Type: Spontaneous
  Country: US (occurrence: US)
  Receive Date: 20210518
  Receipt Date: 20210518
  Transmission Date: 20210717
  Serious: Yes (Death, Hospitalization)
  Sender: FDA-Public Use
  Company Number: None

PATIENT
  Age: 32 Year
  Sex: Male
  Weight: 87.75 kg

DRUGS (2)
  1. HERBAL SUPPLEMENTS (GINGER, CINNAMON, MAGNESIUM, ZINC) [Concomitant]
  2. PHENYTOIN 100MG [Suspect]
     Active Substance: PHENYTOIN
     Indication: EPILEPSY
     Dosage: ?          QUANTITY:5 CAPSULE(S);?
     Route: 048
     Dates: start: 20180201, end: 20200901

REACTIONS (2)
  - Intentional overdose [None]
  - Completed suicide [None]

NARRATIVE: CASE EVENT DATE: 20200901
